FAERS Safety Report 7279681-3 (Version None)
Quarter: 2011Q1

REPORT INFORMATION
  Report Type: 
  Country: None (occurrence: None)
  Receive Date: 20110203
  Receipt Date: 20110203
  Transmission Date: 20110831
  Serious: No
  Sender: FDA-Public Use
  Company Number: None

PATIENT
  Sex: Female
  Weight: 91.173 kg

DRUGS (2)
  1. LEXAPRO [Suspect]
     Indication: ANTIDEPRESSANT THERAPY
     Dates: start: 20100301, end: 20110129
  2. TRILEPTAL [Suspect]
     Indication: AFFECTIVE DISORDER
     Dates: start: 20101010, end: 20110126

REACTIONS (3)
  - DRUG INTERACTION [None]
  - MUSCLE SPASMS [None]
  - TEMPOROMANDIBULAR JOINT SYNDROME [None]
